FAERS Safety Report 23674826 (Version 4)
Quarter: 2024Q2

REPORT INFORMATION
  Report Type: Spontaneous
  Country: US (occurrence: US)
  Receive Date: 20240326
  Receipt Date: 20240520
  Transmission Date: 20240715
  Serious: No
  Sender: FDA-Public Use
  Company Number: US-TRAVERE-2024TVT00293

PATIENT
  Age: 41 Year
  Sex: Male

DRUGS (3)
  1. FILSPARI [Suspect]
     Active Substance: SPARSENTAN
     Indication: IgA nephropathy
     Route: 048
     Dates: start: 202402, end: 202404
  2. FILSPARI [Suspect]
     Active Substance: SPARSENTAN
     Indication: Haematuria
  3. FILSPARI [Suspect]
     Active Substance: SPARSENTAN
     Indication: Chronic kidney disease

REACTIONS (7)
  - Vomiting [Unknown]
  - Diarrhoea [Unknown]
  - Pharyngitis streptococcal [Unknown]
  - Nausea [Unknown]
  - Illness [Unknown]
  - Fatigue [Unknown]
  - Somnolence [Unknown]
